FAERS Safety Report 4350574-4 (Version None)
Quarter: 2004Q2

REPORT INFORMATION
  Report Type: 
  Country: None (occurrence: None)
  Receive Date: 20040430
  Receipt Date: 20040323
  Transmission Date: 20050107
  Serious: Yes (Death, Life-Threatening, Hospitalization, Other)
  Sender: FDA-Public Use
  Company Number: US-AMGEN-US070926

PATIENT
  Sex: Female

DRUGS (6)
  1. NEUPOGEN [Suspect]
     Indication: CHEMOTHERAPY
     Route: 058
     Dates: start: 19960101, end: 19960424
  2. CYTOXAN [Suspect]
     Dates: start: 19951227, end: 19980728
  3. ADRIAMYCIN PFS [Suspect]
     Dates: start: 19951227, end: 19980728
  4. ETOPOSIDE [Suspect]
     Dates: start: 19951227, end: 19960413
  5. VINCRISTINE [Concomitant]
     Dates: start: 19970505, end: 19980728
  6. PREDNISONE [Concomitant]
     Dates: start: 19970505, end: 19980728

REACTIONS (11)
  - ACUTE MYELOID LEUKAEMIA [None]
  - BACTERIA URINE IDENTIFIED [None]
  - KLEBSIELLA INFECTION [None]
  - LYMPHOMA [None]
  - NEOPLASM RECURRENCE [None]
  - NON-HODGKIN'S LYMPHOMA RECURRENT [None]
  - PANCYTOPENIA [None]
  - PYELONEPHRITIS [None]
  - SEPSIS [None]
  - URINARY TRACT INFECTION [None]
  - VOLVULUS OF BOWEL [None]
